FAERS Safety Report 6292160-5 (Version None)
Quarter: 2009Q3

REPORT INFORMATION
  Report Type: 
  Country: None (occurrence: None)
  Receive Date: 20090731
  Receipt Date: 20090723
  Transmission Date: 20100115
  Serious: Yes (Hospitalization)
  Sender: FDA-Public Use
  Company Number: ES-JNJFOC-20090709072

PATIENT
  Age: 80 Year
  Sex: Female

DRUGS (1)
  1. SPORANOX [Suspect]
     Indication: FUNGAL INFECTION
     Route: 048

REACTIONS (4)
  - DYSARTHRIA [None]
  - EYELID OEDEMA [None]
  - GAIT DISTURBANCE [None]
  - TONGUE OEDEMA [None]
